FAERS Safety Report 10150641 (Version 1)
Quarter: 2014Q2

REPORT INFORMATION
  Report Type: Spontaneous
  Country: US (occurrence: US)
  Receive Date: 20140502
  Receipt Date: 20140502
  Transmission Date: 20141212
  Serious: No
  Sender: FDA-Public Use
  Company Number: US-PFIZER INC-2014119382

PATIENT
  Age: 53 Year
  Sex: Male
  Weight: 102.4 kg

DRUGS (2)
  1. VIAGRA [Suspect]
     Indication: SEXUAL DYSFUNCTION
     Dosage: 100 MG, UNK
     Dates: start: 2004
  2. PERCOCET [Concomitant]
     Dosage: UNK

REACTIONS (1)
  - Drug ineffective [Unknown]
